FAERS Safety Report 9615143 (Version 1)
Quarter: 2013Q4

REPORT INFORMATION
  Report Type: Spontaneous
  Country: US (occurrence: US)
  Receive Date: 20131011
  Receipt Date: 20131011
  Transmission Date: 20140711
  Serious: No
  Sender: FDA-Public Use
  Company Number: US-PURDUE-USA-2013-0097739

PATIENT
  Age: 71 Year
  Sex: Female

DRUGS (4)
  1. BUTRANS [Suspect]
     Indication: BACK PAIN
     Dosage: 10 MCG, WEEKLY
     Route: 062
     Dates: start: 20130115, end: 20130116
  2. BUTRANS [Suspect]
     Indication: ARTHRALGIA
  3. VICODIN [Concomitant]
     Indication: BACK PAIN
     Dosage: 7/700 MG, Q6H
     Route: 048
  4. VICODIN [Concomitant]
     Indication: ARTHRALGIA

REACTIONS (3)
  - Expired drug administered [Recovered/Resolved]
  - Headache [Recovered/Resolved]
  - Insomnia [Recovered/Resolved]
